FAERS Safety Report 4335638-3 (Version None)
Quarter: 2004Q2

REPORT INFORMATION
  Report Type: 
  Country: None (occurrence: None)
  Receive Date: 20040409
  Receipt Date: 20040319
  Transmission Date: 20050107
  Serious: Yes (Hospitalization)
  Sender: FDA-Public Use
  Company Number: GB-ROCHE-362147

PATIENT
  Age: 60 Year
  Sex: Female
  Weight: 38.2 kg

DRUGS (12)
  1. CAPECITABINE [Suspect]
     Dosage: TAKEN TWICE DAILY FOR TWENTY ONE DAYS FOLLOWED BY SEVEN DAYS REST.
     Route: 048
  2. GEMCITABINE [Suspect]
     Dosage: GIVEN ON DAYS 1, 8 + 15.
     Route: 042
  3. PREMPAK [Concomitant]
     Route: 048
     Dates: start: 19890427
  4. CO-PROXAMOL [Concomitant]
     Dosage: DAILY DOSE REPORTED AS 8
     Route: 048
     Dates: start: 20031115
  5. ZOPICLONE [Concomitant]
     Indication: SEDATION
     Route: 048
     Dates: start: 20031015
  6. LANSOPRAZOLE [Concomitant]
     Route: 048
     Dates: start: 20031115
  7. DOCUSATE [Concomitant]
     Indication: LAXATIVE SUPPORTIVE CARE
     Route: 048
  8. MORPHINE SULFATE [Concomitant]
     Route: 048
     Dates: start: 20031115
  9. ORAMORPH SR [Concomitant]
     Route: 048
     Dates: start: 20031108
  10. DOMPERIDONE [Concomitant]
     Indication: NAUSEA
     Route: 048
     Dates: start: 20031203
  11. LOPERAMIDE HCL [Concomitant]
     Indication: DIARRHOEA
     Route: 048
     Dates: start: 20031203
  12. MIDAZOLAM HCL [Concomitant]

REACTIONS (2)
  - RECTAL HAEMORRHAGE [None]
  - UPPER GASTROINTESTINAL HAEMORRHAGE [None]
